FAERS Safety Report 5913249-3 (Version None)
Quarter: 2008Q4

REPORT INFORMATION
  Report Type: 
  Country: None (occurrence: None)
  Receive Date: 20081007
  Receipt Date: 20080924
  Transmission Date: 20090506
  Serious: Yes (Hospitalization)
  Sender: FDA-Public Use
  Company Number: 2008PV000071

PATIENT
  Age: 17 Year
  Sex: Female

DRUGS (4)
  1. DEPOCYT [Suspect]
     Indication: METASTASES TO MENINGES
     Dosage: 50 MG; 1X; INTH
     Route: 037
     Dates: start: 20080912, end: 20080912
  2. GANCICLOVIR [Concomitant]
  3. VINBLASTINE SULFATE [Concomitant]
  4. PREDNISONE ACETATE [Concomitant]

REACTIONS (8)
  - ARACHNOIDITIS [None]
  - BACK PAIN [None]
  - BONE PAIN [None]
  - DIZZINESS [None]
  - DRUG TOXICITY [None]
  - HEADACHE [None]
  - NAUSEA [None]
  - PARAESTHESIA [None]
